FAERS Safety Report 5391780-X (Version None)
Quarter: 2007Q3

REPORT INFORMATION
  Report Type: 
  Country: None (occurrence: None)
  Receive Date: 20070719
  Receipt Date: 20070709
  Transmission Date: 20080115
  Serious: Yes (Hospitalization)
  Sender: FDA-Public Use
  Company Number: SK-ABBOTT-07P-260-0373814-00

PATIENT
  Age: 50 Year
  Sex: Male
  Weight: 105 kg

DRUGS (4)
  1. GOPTEN [Suspect]
     Indication: HYPERTENSION
     Route: 048
     Dates: start: 20070528, end: 20070623
  2. OMEPRAZOLE [Concomitant]
     Indication: HYPERTENSION
     Route: 048
  3. RAWEL SR [Concomitant]
     Indication: HYPERTENSION
     Route: 048
  4. NITRENDIPINE [Concomitant]
     Indication: HYPERTENSION

REACTIONS (2)
  - ASTHMA [None]
  - LARYNGOSPASM [None]
